FAERS Safety Report 7928266-1 (Version None)
Quarter: 2011Q4

REPORT INFORMATION
  Report Type: 
  Country: None (occurrence: None)
  Receive Date: 20111118
  Receipt Date: 20111116
  Transmission Date: 20120403
  Serious: Yes (Disabling)
  Sender: FDA-Public Use
  Company Number: US-MERCK-1111USA02190

PATIENT
  Sex: Female

DRUGS (4)
  1. FOSAMAX [Suspect]
     Indication: OSTEOPOROSIS PROPHYLAXIS
     Route: 048
     Dates: start: 19950101, end: 20050101
  2. FOSAMAX [Suspect]
     Indication: OSTEOPENIA
     Route: 048
     Dates: start: 19950101, end: 20050101
  3. BONIVA [Suspect]
     Indication: OSTEOPENIA
     Route: 048
     Dates: start: 20050101, end: 20100101
  4. BONIVA [Suspect]
     Indication: OSTEOPOROSIS PROPHYLAXIS
     Route: 048
     Dates: start: 20050101, end: 20100101

REACTIONS (3)
  - MULTIPLE FRACTURES [None]
  - INJURY [None]
  - LOW TURNOVER OSTEOPATHY [None]
